FAERS Safety Report 14668342 (Version 5)
Quarter: 2020Q1

REPORT INFORMATION
  Report Type: Report from Study
  Country: None (occurrence: CA)
  Receive Date: 20180322
  Receipt Date: 20200124
  Transmission Date: 20200409
  Serious: Yes (Hospitalization, Other)
  Sender: FDA-Public Use
  Company Number: CA-ABBVIE-18K-028-2290831-00

PATIENT
  Age: 68 Year
  Sex: Female

DRUGS (3)
  1. HUMIRA [Suspect]
     Active Substance: ADALIMUMAB
     Route: 058
     Dates: start: 201803, end: 20200110
  2. HUMIRA [Suspect]
     Active Substance: ADALIMUMAB
     Route: 058
     Dates: end: 201803
  3. HUMIRA [Suspect]
     Active Substance: ADALIMUMAB
     Indication: CROHN^S DISEASE
     Route: 058
     Dates: start: 20150422

REACTIONS (30)
  - Joint swelling [Not Recovered/Not Resolved]
  - Anal fissure [Not Recovered/Not Resolved]
  - Extra dose administered [Not Recovered/Not Resolved]
  - Vomiting [Recovered/Resolved]
  - Intracardiac thrombus [Unknown]
  - Cerebrovascular accident [Recovered/Resolved]
  - Myocardial infarction [Unknown]
  - Overdose [Unknown]
  - Agitation [Unknown]
  - Cerebral thrombosis [Unknown]
  - Cerebrovascular accident [Recovered/Resolved]
  - Fistula [Not Recovered/Not Resolved]
  - Paralysis [Unknown]
  - Malaise [Unknown]
  - Thrombosis [Not Recovered/Not Resolved]
  - Large intestinal ulcer [Not Recovered/Not Resolved]
  - Memory impairment [Unknown]
  - Psoriasis [Not Recovered/Not Resolved]
  - Thrombosis [Unknown]
  - Diarrhoea [Not Recovered/Not Resolved]
  - Intestinal obstruction [Not Recovered/Not Resolved]
  - Myocardial infarction [Recovered/Resolved]
  - Vomiting [Unknown]
  - Amnesia [Not Recovered/Not Resolved]
  - Cardiac perforation [Not Recovered/Not Resolved]
  - Seizure [Not Recovered/Not Resolved]
  - Cerebrovascular accident [Unknown]
  - Haemorrhoids [Unknown]
  - Visual impairment [Not Recovered/Not Resolved]
  - Hypoaesthesia [Not Recovered/Not Resolved]

NARRATIVE: CASE EVENT DATE: 201701
